FAERS Safety Report 8000708-5 (Version None)
Quarter: 2011Q4

REPORT INFORMATION
  Report Type: 
  Country: None (occurrence: None)
  Receive Date: 20111222
  Receipt Date: 20111212
  Transmission Date: 20120403
  Serious: Yes (Other)
  Sender: FDA-Public Use
  Company Number: CA-JNJFOC-20111207005

PATIENT
  Sex: Female
  Weight: 68.6 kg

DRUGS (2)
  1. REMICADE [Suspect]
     Indication: CROHN'S DISEASE
     Route: 042
  2. REMICADE [Suspect]
     Dosage: HAS HAD 57 INFUSIONS
     Route: 042

REACTIONS (3)
  - ANAL FISTULA [None]
  - CONSTIPATION [None]
  - VAGINAL CYST [None]
